FAERS Safety Report 5726822-2 (Version None)
Quarter: 2008Q2

REPORT INFORMATION
  Report Type: 
  Country: None (occurrence: None)
  Receive Date: 20080502
  Receipt Date: 20080422
  Transmission Date: 20081010
  Serious: Yes (Life-Threatening, Hospitalization)
  Sender: FDA-Public Use
  Company Number: GB-PFIZER INC-2008032742

PATIENT
  Sex: Female
  Weight: 100 kg

DRUGS (6)
  1. LYRICA [Suspect]
     Indication: NEURALGIA
     Route: 048
     Dates: start: 20080325, end: 20080410
  2. PARACETAMOL [Concomitant]
     Indication: PAIN
     Route: 048
     Dates: start: 20080101, end: 20080413
  3. OXYNORM [Concomitant]
     Indication: PAIN
     Route: 048
  4. AMITRIPTLINE HCL [Concomitant]
     Indication: PAIN
     Route: 048
  5. DICLOFENAC [Concomitant]
     Indication: PAIN
     Route: 048
  6. OMEPRAZOLE [Concomitant]
     Route: 048

REACTIONS (2)
  - NEUTROPENIA [None]
  - PULMONARY EMBOLISM [None]
